FAERS Safety Report 5237426-2 (Version None)
Quarter: 2007Q1

REPORT INFORMATION
  Report Type: 
  Country: None (occurrence: None)
  Receive Date: 20070213
  Receipt Date: 20070204
  Transmission Date: 20070707
  Serious: Yes (Death, Hospitalization)
  Sender: FDA-Public Use
  Company Number: IL-ABBOTT-06P-082-0349822-00

PATIENT
  Age: 39 Year
  Sex: Female

DRUGS (4)
  1. KALETRA [Suspect]
     Indication: HIV INFECTION
     Dosage: 800/200 MG
     Route: 048
     Dates: start: 20050101
  2. LAMIVUDINE + ZIDOVUDINE [Concomitant]
     Indication: HIV INFECTION
     Dates: start: 20050101
  3. COPEGUS [Concomitant]
     Indication: HEPATITIS C
  4. POGASYS [Concomitant]
     Indication: HEPATITIS C

REACTIONS (2)
  - GERM CELL CANCER [None]
  - SEPSIS [None]
